FAERS Safety Report 4850360-2 (Version None)
Quarter: 2005Q4

REPORT INFORMATION
  Report Type: 
  Country: None (occurrence: None)
  Receive Date: 20051207
  Receipt Date: 20051207
  Transmission Date: 20060501
  Serious: Yes (Other)
  Sender: FDA-Public Use
  Company Number: None

PATIENT
  Age: 47 Year
  Sex: Female
  Weight: 54.4316 kg

DRUGS (8)
  1. ZOCOR [Suspect]
     Indication: HYPERLIPIDAEMIA
     Dosage: 20MG PO DAILY
     Route: 048
     Dates: start: 20051101
  2. PEROCET [Concomitant]
  3. PROTONIX [Concomitant]
  4. SOMA [Concomitant]
  5. DILTIAZEM HCL [Concomitant]
  6. CLONIDINE [Concomitant]
  7. OMIT PER FDA REP [Concomitant]
  8. IMITREX [Concomitant]

REACTIONS (1)
  - MYALGIA [None]
